FAERS Safety Report 20768873 (Version 2)
Quarter: 2022Q4

REPORT INFORMATION
  Report Type: Report from Study
  Country: BR (occurrence: None)
  Receive Date: 20220429
  Receipt Date: 20221109
  Transmission Date: 20230113
  Serious: Yes (Other)
  Sender: FDA-Public Use
  Company Number: BR-Merck Healthcare KGaA-9119231

PATIENT
  Age: 49 Year
  Sex: Female

DRUGS (2)
  1. INTERFERON BETA-1A [Suspect]
     Active Substance: INTERFERON BETA-1A
     Indication: Multiple sclerosis
     Dosage: THERAPY START DATE: 07-AUG-2019
     Route: 058
  2. REBIF [Suspect]
     Active Substance: INTERFERON BETA-1A
     Indication: Multiple sclerosis
     Dosage: THERAPY START DATE: 01-MAR-2000
     Route: 058
     Dates: end: 20190802

REACTIONS (10)
  - Diabetes mellitus [Not Recovered/Not Resolved]
  - Glaucoma [Not Recovered/Not Resolved]
  - Blindness unilateral [Recovered/Resolved]
  - Hepatic steatosis [Not Recovered/Not Resolved]
  - Blood cholesterol increased [Not Recovered/Not Resolved]
  - Nausea [Unknown]
  - Abdominal discomfort [Unknown]
  - Cataract [Not Recovered/Not Resolved]
  - Diabetic nephropathy [Unknown]
  - Labyrinthitis [Not Recovered/Not Resolved]

NARRATIVE: CASE EVENT DATE: 20020101
